FAERS Safety Report 7794488-6 (Version None)
Quarter: 2011Q3

REPORT INFORMATION
  Report Type: 
  Country: None (occurrence: None)
  Receive Date: 20110930
  Receipt Date: 20110920
  Transmission Date: 20111222
  Serious: Yes (Hospitalization)
  Sender: FDA-Public Use
  Company Number: B0750228A

PATIENT
  Age: 64 Year
  Sex: Female

DRUGS (2)
  1. REQUIP [Suspect]
     Indication: PARKINSON'S DISEASE
  2. FLUINDIONE (FORMULATION UNKNOWN) (FLUINDIONE) [Suspect]
     Indication: THROMBOPHLEBITIS
     Dosage: ORAL
     Route: 048

REACTIONS (5)
  - INTRAVENTRICULAR HAEMORRHAGE [None]
  - INTERNATIONAL NORMALISED RATIO INCREASED [None]
  - DRUG INTERACTION [None]
  - CEREBELLAR HAEMATOMA [None]
  - OVERDOSE [None]
